FAERS Safety Report 8490936-7 (Version None)
Quarter: 2012Q3

REPORT INFORMATION
  Report Type: 
  Country: None (occurrence: None)
  Receive Date: 20120706
  Receipt Date: 20120628
  Transmission Date: 20120928
  Serious: Yes (Disabling)
  Sender: FDA-Public Use
  Company Number: DK-GE HEALTHCARE MEDICAL DIAGNOSTICS-OSCN-NO-0908S-0401

PATIENT
  Sex: Male
  Weight: 87 kg

DRUGS (2)
  1. OMNISCAN [Suspect]
     Indication: RENAL TRANSPLANT
     Route: 042
     Dates: start: 20040831, end: 20040831
  2. OMNISCAN [Suspect]
     Route: 042
     Dates: start: 20060608, end: 20060608

REACTIONS (13)
  - ACTIVITIES OF DAILY LIVING IMPAIRED [None]
  - NEPHROGENIC SYSTEMIC FIBROSIS [None]
  - GAIT DISTURBANCE [None]
  - MOBILITY DECREASED [None]
  - MOTOR DYSFUNCTION [None]
  - OPEN WOUND [None]
  - PAIN IN EXTREMITY [None]
  - SKIN HYPERTROPHY [None]
  - MUSCULAR WEAKNESS [None]
  - CARPAL TUNNEL SYNDROME [None]
  - HEADACHE [None]
  - CEREBRAL CALCIFICATION [None]
  - NEURALGIA [None]
